APPROVED DRUG PRODUCT: TIPIRACIL HYDROCHLORIDE AND TRIFLURIDINE
Active Ingredient: TIPIRACIL HYDROCHLORIDE; TRIFLURIDINE
Strength: EQ 8.19MG BASE;20MG
Dosage Form/Route: TABLET;ORAL
Application: A214024 | Product #002 | TE Code: AB
Applicant: MSN LABORATORIES PRIVATE LTD
Approved: Jan 8, 2025 | RLD: No | RS: No | Type: RX